FAERS Safety Report 19890510 (Version 13)
Quarter: 2023Q4

REPORT INFORMATION
  Report Type: Report from Study
  Country: US (occurrence: US)
  Receive Date: 20210928
  Receipt Date: 20231013
  Transmission Date: 20240110
  Serious: Yes (Other)
  Sender: FDA-Public Use
  Company Number: US-PFIZER INC-2021236463

PATIENT
  Age: 65 Year
  Sex: Female
  Weight: 71.65 kg

DRUGS (21)
  1. LYRICA [Suspect]
     Active Substance: PREGABALIN
     Indication: Epilepsy
     Dosage: 25 MG, EVERY 4 HRS (6 TIMES A DAY)
     Route: 048
  2. LYRICA [Suspect]
     Active Substance: PREGABALIN
     Indication: Seizure
     Dosage: 150 MG, DAILY (1 CAPSULE AT 8 AM, 2 PM, AND 6 PM, THEN 3 CAPSULES AT 10 PM)
     Route: 048
  3. LYRICA [Suspect]
     Active Substance: PREGABALIN
     Indication: Neuropathy peripheral
     Dosage: 25 MG, AS NEEDED (TAKE ONE CAPSULE BY MOUTH)
     Route: 048
  4. LYRICA [Suspect]
     Active Substance: PREGABALIN
     Indication: Depression
  5. LYRICA [Suspect]
     Active Substance: PREGABALIN
     Indication: Focal dyscognitive seizures
  6. LYRICA [Suspect]
     Active Substance: PREGABALIN
     Indication: Congenital neuropathy
  7. LYRICA [Suspect]
     Active Substance: PREGABALIN
     Indication: Partial seizures
  8. LYRICA [Suspect]
     Active Substance: PREGABALIN
     Indication: Pain
  9. LYRICA [Suspect]
     Active Substance: PREGABALIN
     Indication: Diabetic neuropathy
  10. LYRICA [Suspect]
     Active Substance: PREGABALIN
     Indication: Diabetes mellitus
  11. PREGABALIN [Suspect]
     Active Substance: PREGABALIN
     Indication: Product used for unknown indication
     Dosage: UNK
     Route: 065
  12. CYMBALTA [Concomitant]
     Active Substance: DULOXETINE HYDROCHLORIDE
     Indication: Product used for unknown indication
     Dosage: UNK
     Route: 065
  13. PREMARIN [Concomitant]
     Active Substance: ESTROGENS, CONJUGATED
     Indication: Product used for unknown indication
     Dosage: UNK
     Route: 065
  14. CLOBAZAM [Concomitant]
     Active Substance: CLOBAZAM
     Indication: Product used for unknown indication
     Dosage: UNK
     Route: 065
  15. VIMPAT [Concomitant]
     Active Substance: LACOSAMIDE
     Indication: Product used for unknown indication
     Dosage: UNK
     Route: 065
  16. DULOXETINE [Concomitant]
     Active Substance: DULOXETINE
     Indication: Product used for unknown indication
     Dosage: UNK
     Route: 065
  17. TEGRETOL [Concomitant]
     Active Substance: CARBAMAZEPINE
     Indication: Product used for unknown indication
     Dosage: UNK
     Route: 065
  18. DEPAKOTE [Concomitant]
     Active Substance: DIVALPROEX SODIUM
     Indication: Product used for unknown indication
     Dosage: UNK
     Route: 065
  19. LAMICTAL [Concomitant]
     Active Substance: LAMOTRIGINE
     Indication: Product used for unknown indication
     Dosage: UNK
     Route: 065
  20. ONFI [Concomitant]
     Active Substance: CLOBAZAM
     Indication: Product used for unknown indication
     Dosage: UNK
     Route: 065
  21. KEPPRA [Concomitant]
     Active Substance: LEVETIRACETAM
     Indication: Sleep disorder
     Dosage: 250 MILLIGRAM
     Route: 065

REACTIONS (6)
  - Suicidal ideation [Unknown]
  - Aura [Unknown]
  - Cerebral disorder [Unknown]
  - Insomnia [Unknown]
  - Fatigue [Unknown]
  - Off label use [Unknown]

NARRATIVE: CASE EVENT DATE: 20211015
